FAERS Safety Report 7650720-0 (Version None)
Quarter: 2011Q3

REPORT INFORMATION
  Report Type: 
  Country: None (occurrence: None)
  Receive Date: 20110727
  Receipt Date: 20110715
  Transmission Date: 20111222
  Serious: Yes (Death, Hospitalization, Other)
  Sender: FDA-Public Use
  Company Number: WAES 1007USA01911

PATIENT
  Sex: Female

DRUGS (4)
  1. ISENTRESS [Suspect]
     Indication: HIV INFECTION
     Route: 048
     Dates: start: 20100513, end: 20100713
  2. AMOXICILLIN [Suspect]
     Dates: start: 20100610, end: 20100615
  3. LOPINAVIR/RITONAVIR [Suspect]
     Indication: HIV INFECTION
     Route: 048
     Dates: start: 20100513, end: 20100713
  4. CLOTRIMAZOLE [Suspect]
     Dates: start: 20050518, end: 20100713

REACTIONS (15)
  - HYPERSENSITIVITY [None]
  - VOMITING [None]
  - DEHYDRATION [None]
  - DIARRHOEA [None]
  - ORAL CANDIDIASIS [None]
  - HEPATIC FAILURE [None]
  - RENAL DISORDER [None]
  - BACTERIAL SEPSIS [None]
  - UPPER RESPIRATORY TRACT INFECTION [None]
  - THROMBOCYTOPENIA [None]
  - JAUNDICE [None]
  - LEUKOCYTOSIS [None]
  - HEPATITIS B [None]
  - COLITIS [None]
  - NEUTROPHILIA [None]
